FAERS Safety Report 6053885-X (Version None)
Quarter: 2009Q1

REPORT INFORMATION
  Report Type: 
  Country: None (occurrence: None)
  Receive Date: 20090123
  Receipt Date: 20090108
  Transmission Date: 20090719
  Serious: Yes (Hospitalization)
  Sender: FDA-Public Use
  Company Number: 2009S1000392

PATIENT
  Age: 86 Year
  Sex: Female

DRUGS (7)
  1. CITALOPRAM DURA (CITALOPRAM HYDROBROMIDE) (20 MG) [Suspect]
     Indication: DEPRESSION
     Dosage: 40 MG; DAILY; ORAL
     Route: 048
  2. MIRTAZAPINE [Concomitant]
  3. RISPERIDONE [Concomitant]
  4. HYDROXYUREA [Concomitant]
  5. BELOC/00376902/ [Concomitant]
  6. TORSEMIDE [Concomitant]
  7. ISODUR [Concomitant]

REACTIONS (2)
  - DRUG INEFFECTIVE [None]
  - DRUG LEVEL BELOW THERAPEUTIC [None]
